FAERS Safety Report 9931789 (Version 1)
Quarter: 2014Q1

REPORT INFORMATION
  Report Type: Spontaneous
  Country: US (occurrence: None)
  Receive Date: 20140227
  Receipt Date: 20140227
  Transmission Date: 20141002
  Serious: Yes (Other)
  Sender: FDA-Public Use
  Company Number: None

PATIENT
  Age: 59 Year
  Sex: Female
  Weight: 107.96 kg

DRUGS (2)
  1. CIPRO 500 MG [Suspect]
     Indication: STAPHYLOCOCCAL INFECTION
     Dosage: 500 MG/ 1 PILL TWICE DAILY TAKEN BY MOUTH
     Route: 048
     Dates: start: 20140214, end: 20140226
  2. CIPRO 500 MG [Suspect]
     Indication: DEVICE RELATED INFECTION
     Dosage: 500 MG/ 1 PILL TWICE DAILY TAKEN BY MOUTH
     Route: 048
     Dates: start: 20140214, end: 20140226

REACTIONS (7)
  - Musculoskeletal pain [None]
  - Muscle disorder [None]
  - Myalgia [None]
  - Drug ineffective [None]
  - Bone pain [None]
  - Muscle tightness [None]
  - Dyspnoea [None]
